FAERS Safety Report 18147416 (Version 1)
Quarter: 2020Q3

REPORT INFORMATION
  Report Type: Spontaneous
  Country: US (occurrence: US)
  Receive Date: 20200813
  Receipt Date: 20200813
  Transmission Date: 20201103
  Serious: Yes (Other)
  Sender: FDA-Public Use
  Company Number: NVSC2020US222324

PATIENT
  Age: 66 Year
  Sex: Male

DRUGS (1)
  1. LEVETIRACETAM. [Suspect]
     Active Substance: LEVETIRACETAM
     Indication: HOLMES TREMOR
     Dosage: UNK
     Route: 065

REACTIONS (3)
  - Holmes tremor [Unknown]
  - Condition aggravated [Unknown]
  - Product use in unapproved indication [Unknown]
